FAERS Safety Report 6084841-3 (Version None)
Quarter: 2009Q1

REPORT INFORMATION
  Report Type: 
  Country: None (occurrence: None)
  Receive Date: 20090218
  Receipt Date: 20090209
  Transmission Date: 20090719
  Serious: Yes (Other)
  Sender: FDA-Public Use
  Company Number: JPI-P-006065

PATIENT
  Age: 53 Year
  Sex: Female
  Weight: 85.2762 kg

DRUGS (16)
  1. XYREM [Suspect]
     Indication: FIBROMYALGIA
     Dosage: 5 GM (2.5 GM, 2 IN 1 D) ,ORAL
     Route: 048
     Dates: start: 20090101, end: 20090205
  2. XYREM [Suspect]
     Indication: NARCOLEPSY
     Dosage: 5 GM (2.5 GM, 2 IN 1 D) ,ORAL
     Route: 048
     Dates: start: 20090101, end: 20090205
  3. LEVOTHYROXINE SODIUM [Concomitant]
  4. CLONAZEPAM [Concomitant]
  5. TRIMETHOBENZAMIDE HYDROCHLORIDE (TABLETS) [Concomitant]
  6. PENTOSAN POLYSUFLATE SODIUM [Concomitant]
  7. LUBIPROSTONE [Concomitant]
  8. DULOXETINE HYDROCHLORIDE (CAPSULES) [Concomitant]
  9. TRAMADOL HCL [Concomitant]
  10. OXYCONTIN [Concomitant]
  11. EZETIMIBE [Concomitant]
  12. TRIMETHOPRIM/SULFAMETHOXAZOLE (TABLETS) [Concomitant]
  13. QUETIAPINE FUMARATE [Concomitant]
  14. LIOTHYRONINE SODIUM [Concomitant]
  15. IPRATROPIUM BROMIDE AND ALBUTEROL SULFATE [Concomitant]
  16. ESTERIFIED ESTROGENS/METHYLTESTOSTERONE [Concomitant]

REACTIONS (4)
  - BLOOD PRESSURE INCREASED [None]
  - CONDITION AGGRAVATED [None]
  - FLUID RETENTION [None]
  - HERNIA [None]
